FAERS Safety Report 5863052-8 (Version None)
Quarter: 2008Q3

REPORT INFORMATION
  Report Type: 
  Country: None (occurrence: None)
  Receive Date: 20080828
  Receipt Date: 20080820
  Transmission Date: 20090109
  Serious: Yes (Hospitalization)
  Sender: FDA-Public Use
  Company Number: MY-WYE-H05684208

PATIENT

DRUGS (4)
  1. CONTROLOC [Suspect]
     Route: 042
  2. CONTROLOC [Suspect]
     Route: 042
  3. ALLOPURINOL [Concomitant]
     Indication: GOUTY ARTHRITIS
     Dosage: UNKNOWN
     Route: 065
  4. ALLOPURINOL [Concomitant]
     Route: 042

REACTIONS (2)
  - CONDITION AGGRAVATED [None]
  - GOUTY ARTHRITIS [None]
